FAERS Safety Report 24719149 (Version 2)
Quarter: 2024Q4

REPORT INFORMATION
  Report Type: Spontaneous
  Country: US (occurrence: US)
  Receive Date: 20241210
  Receipt Date: 20241219
  Transmission Date: 20250115
  Serious: Yes (Hospitalization, Other)
  Sender: PHARMING GROUP
  Company Number: US-PHARMING-PHAUS2024001179

PATIENT

DRUGS (1)
  1. JOENJA [Suspect]
     Active Substance: LENIOLISIB PHOSPHATE
     Indication: Activated PI3 kinase delta syndrome
     Dosage: UNK
     Dates: start: 20231113

REACTIONS (2)
  - Diffuse large B-cell lymphoma [Recovering/Resolving]
  - Gastrointestinal perforation [Unknown]
